FAERS Safety Report 6925806-6 (Version None)
Quarter: 2010Q3

REPORT INFORMATION
  Report Type: 
  Country: None (occurrence: None)
  Receive Date: 20100813
  Receipt Date: 20100813
  Transmission Date: 20110219
  Serious: Yes (Other)
  Sender: FDA-Public Use
  Company Number: None

PATIENT
  Age: 23 Year
  Sex: Female
  Weight: 61.2356 kg

DRUGS (1)
  1. ORTHO TRI-CYCLEN LO [Suspect]
     Dates: start: 20091101, end: 20100701

REACTIONS (1)
  - PREGNANCY ON CONTRACEPTIVE [None]
